FAERS Safety Report 8533548-9 (Version None)
Quarter: 2012Q3

REPORT INFORMATION
  Report Type: 
  Country: None (occurrence: None)
  Receive Date: 20120724
  Receipt Date: 20120720
  Transmission Date: 20120928
  Serious: Yes (Hospitalization, Other)
  Sender: FDA-Public Use
  Company Number: JP-PFIZER INC-2012158361

PATIENT
  Age: 51 Year
  Sex: Male
  Weight: 74 kg

DRUGS (1)
  1. VARENICLINE TARTRATE [Suspect]
     Indication: SMOKING CESSATION THERAPY
     Dosage: 1 MG, DAILY
     Route: 048
     Dates: start: 20120421, end: 20120601

REACTIONS (2)
  - ALTERED STATE OF CONSCIOUSNESS [None]
  - FRACTURE [None]
